FAERS Safety Report 10687174 (Version 1)
Quarter: 2014Q4

REPORT INFORMATION
  Report Type: Spontaneous
  Country: US (occurrence: None)
  Receive Date: 20141229
  Receipt Date: 20141229
  Transmission Date: 20150529
  Serious: Yes (Hospitalization)
  Sender: FDA-Public Use
  Company Number: US-MDCO-14-00357

PATIENT
  Age: 69 Year
  Sex: Female

DRUGS (1)
  1. ARGATROBAN. [Suspect]
     Active Substance: ARGATROBAN
     Indication: HEPARIN-INDUCED THROMBOCYTOPENIA
     Dosage: 1 MCG/KG/MIN, NOT REPORTED

REACTIONS (2)
  - Drug effect increased [None]
  - Drug effect prolonged [None]
